FAERS Safety Report 21374018 (Version 1)
Quarter: 2022Q3

REPORT INFORMATION
  Report Type: Spontaneous
  Country: FR (occurrence: FR)
  Receive Date: 20220926
  Receipt Date: 20220926
  Transmission Date: 20221027
  Serious: Yes (Death)
  Sender: FDA-Public Use
  Company Number: FR-AFSSAPS-PO20221676

PATIENT
  Age: 86 Year
  Sex: Female

DRUGS (2)
  1. LENALIDOMIDE [Suspect]
     Active Substance: LENALIDOMIDE
     Indication: Plasma cell myeloma
     Dosage: 15 MILLIGRAM, ONCE A DAY
     Route: 048
     Dates: start: 20220705, end: 20220820
  2. VALACYCLOVIR HYDROCHLORIDE [Suspect]
     Active Substance: VALACYCLOVIR HYDROCHLORIDE
     Indication: Prophylaxis
     Dosage: 500 MILLIGRAM
     Route: 048
     Dates: start: 20220705, end: 20220820

REACTIONS (1)
  - Diarrhoea [Fatal]

NARRATIVE: CASE EVENT DATE: 20220817
